FAERS Safety Report 8325636-7 (Version None)
Quarter: 2012Q2

REPORT INFORMATION
  Report Type: 
  Country: None (occurrence: None)
  Receive Date: 20120501
  Receipt Date: 20120418
  Transmission Date: 20120825
  Serious: Yes (Hospitalization)
  Sender: FDA-Public Use
  Company Number: FR-COVIDIEN/TYCO HEALTHCARE/MALLINCKRODT-T201201491

PATIENT
  Age: 47 Year
  Sex: Female

DRUGS (2)
  1. BROMAZEPAM [Concomitant]
     Indication: DEPRESSION
     Dosage: 3 MG, QD
  2. ANAFRANIL CAP [Suspect]
     Indication: DEPRESSION
     Dosage: 50 MG, QD

REACTIONS (2)
  - EOSINOPHILIC PNEUMONIA ACUTE [None]
  - DRUG RASH WITH EOSINOPHILIA AND SYSTEMIC SYMPTOMS [None]
